FAERS Safety Report 13898556 (Version 2)
Quarter: 2019Q4

REPORT INFORMATION
  Report Type: Report from Study
  Country: US (occurrence: US)
  Receive Date: 20170823
  Receipt Date: 20191120
  Transmission Date: 20200122
  Serious: Yes (Other)
  Sender: FDA-Public Use
  Company Number: US-SA-2017SA155079

PATIENT
  Age: 74 Year
  Sex: Female

DRUGS (1)
  1. ALIROCUMAB [Suspect]
     Active Substance: ALIROCUMAB
     Indication: TYPE IIA HYPERLIPIDAEMIA
     Dosage: 1 DF, QD
     Route: 058

REACTIONS (6)
  - Amnesia [Unknown]
  - Pancreatic cyst [Unknown]
  - Headache [Unknown]
  - Abdominal pain [Unknown]
  - Thrombosis [Unknown]
  - Product dose omission [Unknown]

NARRATIVE: CASE EVENT DATE: 20191112
